FAERS Safety Report 5744800-4 (Version None)
Quarter: 2008Q2

REPORT INFORMATION
  Report Type: 
  Country: None (occurrence: None)
  Receive Date: 20080520
  Receipt Date: 20080508
  Transmission Date: 20081010
  Serious: Yes (Other)
  Sender: FDA-Public Use
  Company Number: PL-PFIZER INC-2008040580

PATIENT
  Sex: Female

DRUGS (2)
  1. VFEND [Suspect]
     Route: 042
  2. ZYVOX [Suspect]
     Route: 042

REACTIONS (1)
  - DERMATITIS EXFOLIATIVE [None]
